FAERS Safety Report 5789070-6 (Version None)
Quarter: 2008Q2

REPORT INFORMATION
  Report Type: 
  Country: None (occurrence: None)
  Receive Date: 20080626
  Receipt Date: 20080617
  Transmission Date: 20081010
  Serious: Yes (Hospitalization, Other)
  Sender: FDA-Public Use
  Company Number: US-JNJFOC-20080301284

PATIENT
  Sex: Female
  Weight: 122.47 kg

DRUGS (6)
  1. REMICADE [Suspect]
     Dosage: DOSE: 4 VIALS
     Route: 042
  2. REMICADE [Suspect]
     Indication: RHEUMATOID ARTHRITIS
     Dosage: DOSE: 4 VIALS
     Route: 042
  3. FOLIC ACID [Concomitant]
  4. PREDNISONE [Concomitant]
  5. METHOTREXATE [Concomitant]
  6. AVANDIA [Concomitant]

REACTIONS (6)
  - ANAEMIA [None]
  - DIZZINESS [None]
  - DYSPNOEA [None]
  - GASTRIC DISORDER [None]
  - HISTOPLASMOSIS [None]
  - VISION BLURRED [None]
